FAERS Safety Report 7114351-3 (Version None)
Quarter: 2010Q4

REPORT INFORMATION
  Report Type: 
  Country: None (occurrence: None)
  Receive Date: 20101119
  Receipt Date: 20101109
  Transmission Date: 20110411
  Serious: Yes (Hospitalization, Other)
  Sender: FDA-Public Use
  Company Number: TR-ELI_LILLY_AND_COMPANY-TR201011002302

PATIENT
  Age: 8 Year
  Sex: Female

DRUGS (2)
  1. HUMATROPE [Suspect]
     Dosage: 90 MG, DAILY FOR 5 DAYS
     Route: 065
     Dates: start: 20090101
  2. HUMATROPE [Suspect]
     Dosage: 95 MG, DAILY (1/D) FOR 2 DYAS IN A WEEK
     Route: 065

REACTIONS (3)
  - HAEMORRHAGE INTRACRANIAL [None]
  - HEMIPLEGIA [None]
  - HYPERTENSION [None]
